FAERS Safety Report 18367720 (Version 1)
Quarter: 2020Q4

REPORT INFORMATION
  Report Type: Spontaneous
  Country: AU (occurrence: AU)
  Receive Date: 20201009
  Receipt Date: 20201009
  Transmission Date: 20210114
  Serious: Yes (Congenital Anomaly)
  Sender: FDA-Public Use
  Company Number: AU-TAKEDA-2020TUS041806

PATIENT

DRUGS (1)
  1. VEDOLIZUMAB [Suspect]
     Active Substance: VEDOLIZUMAB
     Indication: INFLAMMATORY BOWEL DISEASE
     Dosage: 300 MILLIGRAM
     Route: 063

REACTIONS (1)
  - Developmental hip dysplasia [Unknown]
